FAERS Safety Report 15349302 (Version 1)
Quarter: 2018Q3

REPORT INFORMATION
  Report Type: Spontaneous
  Country: US (occurrence: US)
  Receive Date: 20180904
  Receipt Date: 20180904
  Transmission Date: 20181010
  Serious: Yes (Other)
  Sender: FDA-Public Use
  Company Number: US-ASTRAZENECA-2018SF09114

PATIENT
  Sex: Female

DRUGS (14)
  1. GLIMEPIRIDE. [Concomitant]
     Active Substance: GLIMEPIRIDE
     Route: 048
  2. METOPROLOL TARTRATE. [Suspect]
     Active Substance: METOPROLOL TARTRATE
     Route: 048
  3. AZITHROMYCIN ANHYDROUS. [Concomitant]
     Active Substance: AZITHROMYCIN ANHYDROUS
     Route: 048
  4. ATIVAN [Concomitant]
     Active Substance: LORAZEPAM
     Indication: ANXIETY
     Route: 048
  5. QUETIAPINE. [Suspect]
     Active Substance: QUETIAPINE
     Indication: NERVE INJURY
     Dosage: ONE TABLET IN THE MORNING AND 50 MG AT NIGHT
     Route: 048
  6. SENNA [Concomitant]
     Active Substance: SENNA LEAF\SENNOSIDES\SENNOSIDES A AND B
     Indication: CONSTIPATION
     Dosage: TWO TABLETS EVERY THREE DAYS AS NEEDED
     Route: 048
  7. DEXAMETHASONE. [Concomitant]
     Active Substance: DEXAMETHASONE
     Indication: DYSPNOEA
     Route: 048
  8. IBUPROFEN. [Concomitant]
     Active Substance: IBUPROFEN
     Indication: PAIN
     Dosage: 600MG TABLET THREE TIMES DAILY AS NEEDED.
     Route: 048
  9. METHOCARBAMOL. [Concomitant]
     Active Substance: METHOCARBAMOL
     Indication: MUSCLE RELAXANT THERAPY
     Dosage: 2 TABLETS THREE TIMES DAILY
     Route: 048
  10. METFORMIN [Concomitant]
     Active Substance: METFORMIN HYDROCHLORIDE
     Route: 048
  11. PREDNISONE. [Concomitant]
     Active Substance: PREDNISONE
     Indication: PROPHYLAXIS
     Route: 065
  12. ATIVAN [Concomitant]
     Active Substance: LORAZEPAM
     Indication: NERVE INJURY
     Route: 048
  13. MORPHINE [Concomitant]
     Active Substance: MORPHINE
     Indication: PAIN
  14. QUETIAPINE. [Suspect]
     Active Substance: QUETIAPINE
     Indication: ANXIETY
     Dosage: ONE TABLET IN THE MORNING AND 50 MG AT NIGHT
     Route: 048

REACTIONS (10)
  - Hip fracture [Unknown]
  - Neck injury [Unknown]
  - Cerebral disorder [Unknown]
  - Off label use [Unknown]
  - Wrist fracture [Unknown]
  - Back injury [Unknown]
  - Foot fracture [Unknown]
  - Chronic obstructive pulmonary disease [Unknown]
  - Pain [Unknown]
  - Product use issue [Unknown]
